FAERS Safety Report 5206788-4 (Version None)
Quarter: 2007Q1

REPORT INFORMATION
  Report Type: 
  Country: None (occurrence: None)
  Receive Date: 20070109
  Receipt Date: 20061225
  Transmission Date: 20070707
  Serious: Yes (Hospitalization, Other)
  Sender: FDA-Public Use
  Company Number: 2006VX000599

PATIENT
  Age: 66 Year
  Sex: Male
  Weight: 55 kg

DRUGS (8)
  1. INTERFERON ALFACON-1 (INTERFERON ALFACON-1) (9 MIU) [Suspect]
     Indication: HEPATITIS C
     Dosage: 9 MIU; QD; SC;  9 MIU; TIW; SC
     Route: 058
     Dates: start: 20060116, end: 20060129
  2. INTERFERON ALFACON-1 (INTERFERON ALFACON-1) (9 MIU) [Suspect]
     Indication: HEPATITIS C
     Dosage: 9 MIU; QD; SC;  9 MIU; TIW; SC
     Route: 058
     Dates: start: 20060131, end: 20060527
  3. GLYCYRRHIZINATE [Concomitant]
  4. POTASSIUM ACETATE [Concomitant]
  5. PURSENNID [Concomitant]
  6. CINAL [Concomitant]
  7. JUVELA NICOTINATE [Concomitant]
  8. URSODEOXYCHOLIC ACID [Concomitant]

REACTIONS (7)
  - BLOOD PRESSURE INCREASED [None]
  - CEREBELLAR INFARCTION [None]
  - CONVULSION [None]
  - DEPRESSED LEVEL OF CONSCIOUSNESS [None]
  - GLOSSOPTOSIS [None]
  - THALAMIC INFARCTION [None]
  - WHITE BLOOD CELL COUNT DECREASED [None]
